FAERS Safety Report 5320466-2 (Version None)
Quarter: 2007Q1

REPORT INFORMATION
  Report Type: 
  Country: None (occurrence: None)
  Receive Date: 20070215
  Receipt Date: 20060720
  Transmission Date: 20070707
  Serious: Yes (Hospitalization)
  Sender: FDA-Public Use
  Company Number: MC200600408

PATIENT

DRUGS (2)
  1. ANGIOMAX [Suspect]
     Dosage: SEE IMAGE
     Dates: start: 20060620, end: 20060620
  2. ANGIOMAX [Suspect]
     Dosage: SEE IMAGE
     Dates: start: 20060620, end: 20060620

REACTIONS (3)
  - CHEST PAIN [None]
  - COAGULATION TIME ABNORMAL [None]
  - CORONARY ARTERY THROMBOSIS [None]
